FAERS Safety Report 7214766-9 (Version None)
Quarter: 2011Q1

REPORT INFORMATION
  Report Type: 
  Country: None (occurrence: None)
  Receive Date: 20110107
  Receipt Date: 20100226
  Transmission Date: 20110831
  Serious: No
  Sender: FDA-Public Use
  Company Number: A0842358A

PATIENT
  Age: 49 Year
  Sex: Male

DRUGS (1)
  1. LOVAZA [Suspect]
     Dosage: 4G PER DAY
     Route: 048
     Dates: start: 20071201

REACTIONS (2)
  - PRODUCT QUALITY ISSUE [None]
  - DIARRHOEA [None]
